FAERS Safety Report 9378917 (Version 1)
Quarter: 2013Q3

REPORT INFORMATION
  Report Type: Spontaneous
  Country: US (occurrence: US)
  Receive Date: 20130702
  Receipt Date: 20130702
  Transmission Date: 20140515
  Serious: No
  Sender: FDA-Public Use
  Company Number: US-PFIZER INC-2013193848

PATIENT
  Age: 23 Year
  Sex: Female
  Weight: 122 kg

DRUGS (4)
  1. VISTARIL [Suspect]
     Indication: DEPRESSION
     Dosage: 50 MG, THREE TIMES A DAY
  2. VISTARIL [Suspect]
     Indication: BORDERLINE PERSONALITY DISORDER
  3. ZOLOFT [Concomitant]
     Indication: DEPRESSION
     Dosage: 100 MG, THREE TIMES A DAY
  4. ZOLOFT [Concomitant]
     Indication: BORDERLINE PERSONALITY DISORDER

REACTIONS (10)
  - Confusional state [Not Recovered/Not Resolved]
  - Dyspnoea [Not Recovered/Not Resolved]
  - Tremor [Not Recovered/Not Resolved]
  - Dehydration [Not Recovered/Not Resolved]
  - Headache [Not Recovered/Not Resolved]
  - Middle insomnia [Not Recovered/Not Resolved]
  - Muscle spasms [Not Recovered/Not Resolved]
  - Myalgia [Not Recovered/Not Resolved]
  - Nausea [Not Recovered/Not Resolved]
  - Vomiting [Not Recovered/Not Resolved]
